FAERS Safety Report 6155947-5 (Version None)
Quarter: 2009Q2

REPORT INFORMATION
  Report Type: 
  Country: None (occurrence: None)
  Receive Date: 20090415
  Receipt Date: 20090403
  Transmission Date: 20091009
  Serious: Yes (Hospitalization)
  Sender: FDA-Public Use
  Company Number: TW-BRISTOL-MYERS SQUIBB COMPANY-14543052

PATIENT
  Age: 71 Year
  Sex: Male
  Weight: 54 kg

DRUGS (11)
  1. IXABEPILONE [Suspect]
     Indication: NON-SMALL CELL LUNG CANCER
     Dosage: 1 DOSAGE FORM = 50(UNITS NOT SPECIFIED).  GIVEN ON 26MAR09, 38.5(UNITS NOT SPECIFIED), IV.
     Route: 042
     Dates: start: 20090305, end: 20090305
  2. CARBOPLATIN [Suspect]
     Indication: NON-SMALL CELL LUNG CANCER
     Dosage: 1 DOSAGE FORM=560 (UNIT NOT SPECIFIED). GIVEN ON 26MAR09, 533 (UNIT NOT SPECIFIED), IV.
     Route: 042
     Dates: start: 20090305, end: 20090305
  3. AMLODIPINE [Concomitant]
     Dosage: ROUTE: IVA. FREQUENCY: ST.
     Route: 042
     Dates: start: 20090203
  4. COLD REMEDY [Concomitant]
     Dates: start: 20090203
  5. TRANEXAMIC ACID [Concomitant]
     Dates: start: 20090203
  6. AMBROXOL [Concomitant]
     Dates: start: 20090203
  7. SILYMARIN [Concomitant]
  8. METOCLOPRAMIDE [Concomitant]
     Dates: start: 20090305
  9. DEXAMETHASONE TAB [Concomitant]
     Indication: PREMEDICATION
     Dates: start: 20090305, end: 20090305
  10. RANITIDINE [Concomitant]
     Indication: PREMEDICATION
     Dates: start: 20090305, end: 20090305
  11. CHLORPHENIRAMINE MALEATE [Concomitant]
     Indication: PREMEDICATION
     Dates: start: 20090305, end: 20090305

REACTIONS (3)
  - FEBRILE NEUTROPENIA [None]
  - PHLEBITIS [None]
  - THROMBOPHLEBITIS [None]
